FAERS Safety Report 4279509-X (Version None)
Quarter: 2004Q1

REPORT INFORMATION
  Report Type: 
  Country: None (occurrence: None)
  Receive Date: 20040127
  Receipt Date: 20030912
  Transmission Date: 20041129
  Serious: Yes (Hospitalization)
  Sender: FDA-Public Use
  Company Number: DK-BRISTOL-MYERS SQUIBB COMPANY-12381307

PATIENT
  Age: 69 Year
  Sex: Female

DRUGS (3)
  1. CISPLATIN [Suspect]
     Indication: BLADDER CANCER
     Dosage: FIRST DOSE ADMIN. 08-JUL-2003
     Dates: start: 20030731, end: 20030731
  2. PACLITAXEL [Suspect]
     Indication: BLADDER CANCER
     Dosage: FIRST DOSE ADMIN. 08-JUL-2003
     Dates: start: 20030731, end: 20030731
  3. GEMCITABINE [Suspect]
     Indication: BLADDER CANCER
     Dosage: FIRST DOSE ADMIN. 08-JUL-2003
     Dates: start: 20030731, end: 20030731

REACTIONS (4)
  - DIZZINESS [None]
  - DYSPNOEA [None]
  - MALAISE [None]
  - NAUSEA [None]
